FAERS Safety Report 12214715 (Version 4)
Quarter: 2016Q4

REPORT INFORMATION
  Report Type: Spontaneous
  Country: US (occurrence: US)
  Receive Date: 20160328
  Receipt Date: 20161020
  Transmission Date: 20170207
  Serious: No
  Sender: FDA-Public Use
  Company Number: US-BRISTOL-MYERS SQUIBB COMPANY-BMS-2016-022725

PATIENT
  Sex: Female

DRUGS (2)
  1. SPRYCEL [Suspect]
     Active Substance: DASATINIB
     Dosage: 100 MG, QD
     Route: 048
     Dates: start: 20151216
  2. SPRYCEL [Suspect]
     Active Substance: DASATINIB
     Indication: MYELOID LEUKAEMIA
     Dosage: 140 MG, QD
     Route: 048
     Dates: start: 20151215

REACTIONS (7)
  - Irritability [Unknown]
  - Pain [Unknown]
  - Depressed mood [Unknown]
  - Stomatitis [Recovering/Resolving]
  - Headache [Unknown]
  - Acne [Recovering/Resolving]
  - Disturbance in attention [Unknown]
